FAERS Safety Report 8474241-0 (Version None)
Quarter: 2012Q2

REPORT INFORMATION
  Report Type: 
  Country: None (occurrence: None)
  Receive Date: 20120628
  Receipt Date: 20120619
  Transmission Date: 20120825
  Serious: Yes (Hospitalization)
  Sender: FDA-Public Use
  Company Number: US-BAYER-2012-053729

PATIENT
  Age: 30 Year
  Sex: Female
  Weight: 129.25 kg

DRUGS (14)
  1. HYDROCODONE BITARTRATE + ACETAMINOPHEN [Concomitant]
     Indication: PAIN
     Dosage: 5/500MG
  2. LORTAB [Concomitant]
     Dosage: 7.5 MG, UNK
  3. CYCLOBENZAPRINE [Concomitant]
     Indication: MUSCLE RELAXANT THERAPY
     Dosage: 10 MG, UNK
  4. YASMIN [Suspect]
     Indication: CONTRACEPTION
     Dosage: UNK
     Dates: start: 20020716, end: 20080705
  5. RHINOCORT [Concomitant]
     Dosage: 32 ?G, UNK
  6. DROSPIRENONE AND ETHINYL ESTRADIOL [Suspect]
     Indication: CONTRACEPTION
     Dosage: UNK
     Dates: start: 20080705, end: 20080911
  7. YASMIN [Suspect]
     Dosage: UNK
     Dates: start: 20080911, end: 20090721
  8. NAPROXEN [Concomitant]
     Indication: PAIN
     Dosage: 500 MG, UNK
  9. SYNTHROID [Concomitant]
  10. LORTAB [Concomitant]
     Indication: PAIN
     Dosage: 5 MG, UNK
  11. LEVOTHYROXINE [Concomitant]
     Indication: THYROID DISORDER
     Dosage: 175 ?G, UNK
  12. ASPIRIN [Concomitant]
  13. MELOXICAM [Concomitant]
     Dosage: 15 MG, UNK
  14. HYDROCODONE BITARTRATE + ACETAMINOPHEN [Concomitant]
     Dosage: 7.5-500MG

REACTIONS (4)
  - PAIN [None]
  - PAIN IN EXTREMITY [None]
  - DEEP VEIN THROMBOSIS [None]
  - INJURY [None]
